FAERS Safety Report 7051385-1 (Version None)
Quarter: 2010Q4

REPORT INFORMATION
  Report Type: 
  Country: None (occurrence: None)
  Receive Date: 20101013
  Receipt Date: 20100930
  Transmission Date: 20110411
  Serious: Yes (Hospitalization)
  Sender: FDA-Public Use
  Company Number: 2010AM003162

PATIENT
  Sex: Male
  Weight: 127.0072 kg

DRUGS (11)
  1. SYMLIN [Suspect]
     Indication: TYPE 2 DIABETES MELLITUS
     Dosage: 120 MCG; TID; SC
     Route: 058
     Dates: start: 20060101
  2. CRESTOR [Concomitant]
  3. TRICOR [Concomitant]
  4. LISINOPRIL [Concomitant]
  5. ACTOS [Concomitant]
  6. GABAPENTIN [Concomitant]
  7. METFORMIN HCL [Concomitant]
  8. LANTUS [Concomitant]
  9. HUMALOG [Concomitant]
  10. AMITRIPTYLINE HCL [Concomitant]
  11. COUMADIN [Concomitant]

REACTIONS (5)
  - ARTHRALGIA [None]
  - BLOOD GLUCOSE DECREASED [None]
  - FALL [None]
  - MUSCULOSKELETAL PAIN [None]
  - STREPTOCOCCAL INFECTION [None]
